FAERS Safety Report 4377221-X (Version None)
Quarter: 2004Q2

REPORT INFORMATION
  Report Type: 
  Country: None (occurrence: None)
  Receive Date: 20040608
  Receipt Date: 20040601
  Transmission Date: 20050107
  Serious: Yes (Death)
  Sender: FDA-Public Use
  Company Number: THQ2004A00490

PATIENT
  Age: 67 Year
  Sex: Male

DRUGS (7)
  1. LEUPROLIDE ACETATE [Suspect]
     Dosage: 11.25 MG (11.25 MG)
     Dates: start: 20040122, end: 20040122
  2. ASPIRIN [Concomitant]
  3. METOPROLOL (METOPROLOL) [Concomitant]
  4. BEZAFIBRATE (BEZAFIBRATE) [Concomitant]
  5. SIMVASTATIN [Concomitant]
  6. TOLTERODINE (TOLTERODINE) [Concomitant]
  7. ALLOPURINOL [Concomitant]

REACTIONS (7)
  - ANGINA PECTORIS [None]
  - CIRCULATORY COLLAPSE [None]
  - CONFUSIONAL STATE [None]
  - FALL [None]
  - FEELING ABNORMAL [None]
  - MYOCARDIAL INFARCTION [None]
  - SUDDEN DEATH [None]
